FAERS Safety Report 9054366 (Version 1)
Quarter: 2013Q1

REPORT INFORMATION
  Report Type: Spontaneous
  Country: US (occurrence: US)
  Receive Date: 20130208
  Receipt Date: 20130208
  Transmission Date: 20140127
  Serious: No
  Sender: FDA-Public Use
  Company Number: US-GLAXOSMITHKLINE-A0780588A

PATIENT
  Age: 60 Year
  Sex: Female

DRUGS (5)
  1. PAROXETINE [Suspect]
     Indication: DEPRESSION
     Dosage: 25MG PER DAY
     Route: 048
     Dates: start: 20090324
  2. PAXIL [Suspect]
     Indication: PRODUCT USED FOR UNKNOWN INDICATION
     Route: 048
     Dates: start: 199609, end: 2010
  3. VYVANSE [Concomitant]
  4. CRESTOR [Concomitant]
  5. LISINOPRIL [Concomitant]

REACTIONS (3)
  - Depression [Unknown]
  - Drug ineffective [Unknown]
  - Breast enlargement [Not Recovered/Not Resolved]
